FAERS Safety Report 7221786-7 (Version None)
Quarter: 2011Q1

REPORT INFORMATION
  Report Type: 
  Country: None (occurrence: None)
  Receive Date: 20110111
  Receipt Date: 20101119
  Transmission Date: 20110831
  Serious: No
  Sender: FDA-Public Use
  Company Number: DL2010-0941

PATIENT
  Age: 18 Year
  Sex: Female

DRUGS (3)
  1. MIFEPRISTONE (MIFEPREX) [Suspect]
     Indication: ABORTION INDUCED
     Dosage: 200 MG, ORAL
     Route: 048
     Dates: start: 20101019
  2. DOXYCYCLINE [Concomitant]
  3. MISOPROSTOL [Suspect]
     Dosage: 800 MCG, BUCCAL (DID NOT TAKE)
     Route: 002

REACTIONS (1)
  - PREGNANCY [None]
